FAERS Safety Report 7275472-8 (Version None)
Quarter: 2011Q1

REPORT INFORMATION
  Report Type: 
  Country: None (occurrence: None)
  Receive Date: 20110124
  Receipt Date: 20110124
  Transmission Date: 20110831
  Serious: Yes (Hospitalization)
  Sender: FDA-Public Use
  Company Number: None

PATIENT
  Sex: Female

DRUGS (2)
  1. DECADRON [Concomitant]
  2. TYKERB [Suspect]
     Indication: BREAST CANCER
     Dosage: #6 TABS QD PO
     Route: 048
     Dates: start: 20101231, end: 20110101

REACTIONS (5)
  - HEADACHE [None]
  - DIARRHOEA [None]
  - VOMITING [None]
  - DEHYDRATION [None]
  - RASH [None]
